FAERS Safety Report 6406555-X (Version None)
Quarter: 2009Q4

REPORT INFORMATION
  Report Type: 
  Country: None (occurrence: None)
  Receive Date: 20091014
  Receipt Date: 20091001
  Transmission Date: 20100525
  Serious: Yes (Death)
  Sender: FDA-Public Use
  Company Number: KV200900783

PATIENT
  Age: 69 Year
  Sex: Male

DRUGS (9)
  1. ISOSORBIDE MONONITRATE [Suspect]
     Indication: DRUG USE FOR UNKNOWN INDICATION
     Dosage: 30 MG, QD, ORAL
     Route: 048
     Dates: start: 20080207
  2. ALDACTONE [Concomitant]
  3. NITROGLYCERIN [Concomitant]
  4. VASOTEC [Concomitant]
  5. COREG [Concomitant]
  6. ENALAPRIL MALEATE [Concomitant]
  7. SIMVASTATIN [Concomitant]
  8. ALLOPURINOL [Concomitant]
  9. JANTOVEN [Concomitant]

REACTIONS (23)
  - ACUTE MYOCARDIAL INFARCTION [None]
  - AMNESIA [None]
  - ATRIOVENTRICULAR BLOCK FIRST DEGREE [None]
  - BACK PAIN [None]
  - BUNDLE BRANCH BLOCK RIGHT [None]
  - CARDIO-RESPIRATORY ARREST [None]
  - CHEST PAIN [None]
  - CHRONIC OBSTRUCTIVE PULMONARY DISEASE [None]
  - CORONARY ARTERY DISEASE [None]
  - DEAFNESS [None]
  - DIZZINESS [None]
  - DYSPNOEA [None]
  - FATIGUE [None]
  - HEART RATE DECREASED [None]
  - HYPOAESTHESIA [None]
  - INTERMITTENT CLAUDICATION [None]
  - MYOCARDIAL ISCHAEMIA [None]
  - PALPITATIONS [None]
  - SINUS ARRHYTHMIA [None]
  - SINUS HEADACHE [None]
  - VISUAL IMPAIRMENT [None]
  - WEIGHT INCREASED [None]
  - WHEEZING [None]
